FAERS Safety Report 19519532 (Version 1)
Quarter: 2021Q3

REPORT INFORMATION
  Report Type: Spontaneous
  Country: RO (occurrence: RO)
  Receive Date: 20210712
  Receipt Date: 20210712
  Transmission Date: 20211014
  Serious: Yes (Life-Threatening, Hospitalization, Other)
  Sender: FDA-Public Use
  Company Number: RO-MACLEODS PHARMACEUTICALS US LTD-MAC2021031824

PATIENT

DRUGS (4)
  1. PARACETAMOL [Concomitant]
     Active Substance: ACETAMINOPHEN
     Indication: CHEST PAIN
     Dosage: UNK, 4?6 H TIME INTERVAL
     Route: 064
  2. METAMIZOLE [Concomitant]
     Active Substance: METAMIZOLE
     Indication: CHEST PAIN
     Dosage: UNK, 4?6 H TIME INTERVAL
     Route: 064
  3. TRAMADOL. [Suspect]
     Active Substance: TRAMADOL
     Indication: PRODUCT USED FOR UNKNOWN INDICATION
     Dosage: UNK, 4?6 H TIME INTERVAL
     Route: 064
  4. CODEINE [Suspect]
     Active Substance: CODEINE
     Indication: PRODUCT USED FOR UNKNOWN INDICATION
     Dosage: UNK, 4?6 H TIME INTERVAL
     Route: 064

REACTIONS (2)
  - Withdrawal syndrome [Unknown]
  - Foetal exposure during pregnancy [Unknown]
